FAERS Safety Report 17758951 (Version 1)
Quarter: 2020Q2

REPORT INFORMATION
  Report Type: Spontaneous
  Country: US (occurrence: US)
  Receive Date: 20200508
  Receipt Date: 20200508
  Transmission Date: 20200714
  Serious: No
  Sender: FDA-Public Use
  Company Number: US-JNJFOC-20200434766

PATIENT
  Age: 66 Year
  Sex: Female
  Weight: 68.1 kg

DRUGS (1)
  1. PEPCID AC [Suspect]
     Active Substance: FAMOTIDINE
     Indication: PROPHYLAXIS
     Dosage: LAST ADMIN DATE: 28-APR-2020
     Route: 048
     Dates: start: 20190601

REACTIONS (2)
  - Product used for unknown indication [Unknown]
  - Off label use [Unknown]

NARRATIVE: CASE EVENT DATE: 20190601
